FAERS Safety Report 20362609 (Version 1)
Quarter: 2022Q1

REPORT INFORMATION
  Report Type: Spontaneous
  Country: US (occurrence: None)
  Receive Date: 20220120
  Receipt Date: 20220120
  Transmission Date: 20220423
  Serious: Yes (Hospitalization, Congenital Anomaly)
  Sender: FDA-Public Use
  Company Number: None

PATIENT
  Age: 1 Day
  Sex: Male
  Weight: 2.29 kg

DRUGS (3)
  1. DULOXETINE [Suspect]
     Active Substance: DULOXETINE
     Indication: Generalised anxiety disorder
     Dosage: FREQUENCY : DAILY;?
     Route: 048
  2. DULOXETINE [Suspect]
     Active Substance: DULOXETINE
     Indication: Adjustment disorder
  3. DULOXETINE [Suspect]
     Active Substance: DULOXETINE
     Indication: Diabetes mellitus

REACTIONS (6)
  - Foetal exposure during pregnancy [None]
  - Premature baby [None]
  - Tracheo-oesophageal fistula [None]
  - Oesophageal atresia [None]
  - Cor triatriatum [None]
  - Polyhydramnios [None]

NARRATIVE: CASE EVENT DATE: 20211220
